FAERS Safety Report 7508927-9 (Version None)
Quarter: 2011Q2

REPORT INFORMATION
  Report Type: 
  Country: None (occurrence: None)
  Receive Date: 20110527
  Receipt Date: 20110519
  Transmission Date: 20111010
  Serious: Yes (Other)
  Sender: FDA-Public Use
  Company Number: PL-SANOFI-AVENTIS-2011SA031133

PATIENT
  Sex: Male

DRUGS (3)
  1. BISOPROLOL FUMARATE [Concomitant]
     Route: 048
  2. MULTAQ [Suspect]
     Indication: ATRIAL FIBRILLATION
     Route: 048
     Dates: start: 20110101
  3. ACENOCOUMAROL [Concomitant]
     Indication: CARDIAC PACEMAKER INSERTION
     Route: 048

REACTIONS (2)
  - DRUG INEFFECTIVE [None]
  - ARRHYTHMIA [None]
